FAERS Safety Report 18958116 (Version 10)
Quarter: 2022Q3

REPORT INFORMATION
  Report Type: Report from Study
  Country: US (occurrence: US)
  Receive Date: 20210302
  Receipt Date: 20220808
  Transmission Date: 20221027
  Serious: Yes (Other)
  Sender: FDA-Public Use
  Company Number: US-GLAXOSMITHKLINE-US2021AMR028726

PATIENT

DRUGS (1)
  1. BELANTAMAB MAFODOTIN [Suspect]
     Active Substance: BELANTAMAB MAFODOTIN
     Indication: Product used for unknown indication
     Dosage: 2.4 MG, Q 3 WEEKS, 19-23 DAYS
     Dates: start: 20201109, end: 20210203

REACTIONS (7)
  - Keratopathy [Not Recovered/Not Resolved]
  - Visual acuity reduced [Not Recovered/Not Resolved]
  - Visual impairment [Unknown]
  - Plasma cell myeloma [Unknown]
  - Adverse event [Unknown]
  - Gastrointestinal tube insertion [Unknown]
  - Product dose omission issue [Unknown]
